FAERS Safety Report 4677498-7 (Version None)
Quarter: 2005Q2

REPORT INFORMATION
  Report Type: 
  Country: None (occurrence: None)
  Receive Date: 20050526
  Receipt Date: 20050526
  Transmission Date: 20051028
  Serious: No
  Sender: FDA-Public Use
  Company Number: None

PATIENT
  Age: 80 Year
  Sex: Male
  Weight: 81 kg

DRUGS (3)
  1. RISPERIDONE [Suspect]
     Indication: AGITATION
     Dosage: 1MG HS / .5MG BID PO
     Route: 048
     Dates: start: 20041117, end: 20041206
  2. RISPERIDONE [Suspect]
     Indication: DEMENTIA
     Dosage: 1MG HS / .5MG BID PO
     Route: 048
     Dates: start: 20041117, end: 20041206
  3. RISPERIDONE [Suspect]

REACTIONS (1)
  - SEDATION [None]
